FAERS Safety Report 18282282 (Version 1)
Quarter: 2020Q3

REPORT INFORMATION
  Report Type: Other
  Country: CN (occurrence: CN)
  Receive Date: 20200918
  Receipt Date: 20200918
  Transmission Date: 20201103
  Serious: Yes (Other)
  Sender: FDA-Public Use
  Company Number: CN-HEALTHCARE PHARMACEUTICALS LTD.-2090894

PATIENT
  Age: 47 Year
  Sex: Female

DRUGS (3)
  1. CISPLATIN. [Suspect]
     Active Substance: CISPLATIN
     Route: 065
     Dates: start: 201804
  2. CAMRELIZUMAB [Suspect]
     Active Substance: CAMRELIZUMAB
     Route: 042
     Dates: start: 201804
  3. DOXORUBICIN HYDROCHLORIDE. [Suspect]
     Active Substance: DOXORUBICIN HYDROCHLORIDE
     Indication: SARCOMATOID CARCINOMA OF THE LUNG
     Route: 065
     Dates: start: 201804

REACTIONS (4)
  - Thrombocytosis [Recovered/Resolved]
  - Rash [Recovered/Resolved]
  - Therapeutic product effect decreased [Unknown]
  - Leukopenia [Recovered/Resolved]
